FAERS Safety Report 6460477-7 (Version None)
Quarter: 2009Q4

REPORT INFORMATION
  Report Type: 
  Country: None (occurrence: None)
  Receive Date: 20091130
  Receipt Date: 20091123
  Transmission Date: 20100525
  Serious: Yes (Hospitalization, Other)
  Sender: FDA-Public Use
  Company Number: PL-ROCHE-670861

PATIENT
  Age: 28 Year
  Sex: Female

DRUGS (7)
  1. CAPECITABINE [Suspect]
     Dosage: DAY 1-DAY 14; RECEIVED 8 COURSES; ONCE EVERY THREE WEEKS
     Route: 065
  2. FLUOROURACIL [Suspect]
     Indication: RECTAL CANCER METASTATIC
     Dosage: INTRAVENOUS BOLUS; ON DAY 1
     Route: 042
  3. FLUOROURACIL [Suspect]
     Dosage: CONTINUOUS INFUSION ON DAY 1-2 EVERY TWO WEEKS
     Route: 042
  4. OXALIPLATIN [Suspect]
     Indication: RECTAL CANCER METASTATIC
     Dosage: ON DAY 1 EVERY TWO WEEKS
     Route: 065
  5. LEUCOVORIN CALCIUM [Suspect]
     Indication: RECTAL CANCER METASTATIC
     Dosage: ON DAY 1 EVERY TWO WEEKS
     Route: 065
  6. ONDANSETRON [Concomitant]
     Indication: PREMEDICATION
     Route: 042
  7. DEXAMETHASONE TAB [Concomitant]
     Indication: PREMEDICATION
     Route: 042

REACTIONS (2)
  - CARDIOTOXICITY [None]
  - MALIGNANT NEOPLASM PROGRESSION [None]
